FAERS Safety Report 5510836-1 (Version None)
Quarter: 2007Q4

REPORT INFORMATION
  Report Type: 
  Country: None (occurrence: None)
  Receive Date: 20071108
  Receipt Date: 20071030
  Transmission Date: 20080405
  Serious: Yes (Other)
  Sender: FDA-Public Use
  Company Number: US-GILEAD-2007-0014059

PATIENT

DRUGS (4)
  1. EMTRICITABINE [Suspect]
     Indication: HIV INFECTION
  2. ATAZANAVIR SULFATE [Suspect]
     Indication: HIV INFECTION
  3. DIDANOSINE [Suspect]
     Indication: HIV INFECTION
  4. RITONAVIR [Suspect]
     Indication: HIV INFECTION

REACTIONS (3)
  - DERMATITIS ALLERGIC [None]
  - PYREXIA [None]
  - STOMATITIS [None]
